FAERS Safety Report 18816989 (Version 3)
Quarter: 2021Q2

REPORT INFORMATION
  Report Type: Spontaneous
  Country: US (occurrence: US)
  Receive Date: 20210201
  Receipt Date: 20210420
  Transmission Date: 20210717
  Serious: No
  Sender: FDA-Public Use
  Company Number: US-LUPIN PHARMACEUTICALS INC.-2021-00724

PATIENT
  Sex: Female

DRUGS (1)
  1. FAMOTIDINE FOR ORAL SUSPENSION USP 40 MG/5ML [Suspect]
     Active Substance: FAMOTIDINE
     Indication: ABDOMINAL DISCOMFORT
     Dosage: UNK, BID
     Route: 065

REACTIONS (2)
  - Product use issue [Unknown]
  - Drug ineffective [Unknown]
